FAERS Safety Report 6879099-9 (Version None)
Quarter: 2010Q3

REPORT INFORMATION
  Report Type: 
  Country: None (occurrence: None)
  Receive Date: 20100728
  Receipt Date: 20100712
  Transmission Date: 20110219
  Serious: Yes (Hospitalization)
  Sender: FDA-Public Use
  Company Number: PHHY2010BR46427

PATIENT
  Age: 71 Year
  Sex: Female
  Weight: 59 kg

DRUGS (4)
  1. TRILEPTAL [Suspect]
     Indication: EPILEPSY
     Dosage: 300 MG, QID
     Route: 048
     Dates: start: 19920101
  2. TRILEPTAL [Suspect]
     Dosage: 300 MG, TID
     Route: 048
  3. TRILEPTAL [Suspect]
     Dosage: 300 MG, BID
     Route: 048
  4. CLONAZEPAM [Concomitant]
     Indication: SLEEP DISORDER
     Dosage: UNK
     Route: 048

REACTIONS (6)
  - CHOLECYSTECTOMY [None]
  - DIZZINESS [None]
  - EPILEPSY [None]
  - HEARING IMPAIRED [None]
  - NERVOUSNESS [None]
  - PAIN [None]
